FAERS Safety Report 7559808-6 (Version None)
Quarter: 2011Q2

REPORT INFORMATION
  Report Type: 
  Country: None (occurrence: None)
  Receive Date: 20110621
  Receipt Date: 20110607
  Transmission Date: 20111010
  Serious: Yes (Hospitalization)
  Sender: FDA-Public Use
  Company Number: US-ROCHE-783482

PATIENT

DRUGS (2)
  1. BEVACIZUMAB [Suspect]
     Indication: BREAST CANCER
     Dosage: OVER 30-90 MINUTES ON DAYS 1 AND 15, LASTADMINISTRATION DATE: 30 SEPTEMBER 2010
     Route: 042
     Dates: start: 20100819, end: 20101118
  2. PACLITAXEL [Suspect]
     Indication: BREAST CANCER
     Dosage: OVER 1 HR ON DAYS 1, 8 AND 15
     Route: 042
     Dates: start: 20100819, end: 20101118

REACTIONS (7)
  - LUNG INFECTION [None]
  - HYPERTENSION [None]
  - PNEUMONITIS [None]
  - ANAEMIA [None]
  - CARDIAC FAILURE [None]
  - DYSPNOEA [None]
  - BLOOD CREATININE INCREASED [None]
